FAERS Safety Report 13943402 (Version 1)
Quarter: 2017Q3

REPORT INFORMATION
  Report Type: Spontaneous
  Country: GB (occurrence: GB)
  Receive Date: 20170907
  Receipt Date: 20170907
  Transmission Date: 20171128
  Serious: Yes (Other)
  Sender: FDA-Public Use
  Company Number: GB-TEVA-801871ACC

PATIENT
  Age: 4 Year
  Sex: Female
  Weight: 12 kg

DRUGS (8)
  1. BACLOFEN. [Concomitant]
     Active Substance: BACLOFEN
     Dosage: 16 ML DAILY;
     Dates: start: 20170406
  2. MELATONIN [Concomitant]
     Active Substance: MELATONIN
     Dosage: 5 ML DAILY;
     Dates: start: 20170428
  3. PARACETAMOL [Concomitant]
     Active Substance: ACETAMINOPHEN
     Dosage: FOR AGE 2 YEARS TO 4 YEARS.
     Dates: start: 20170524, end: 20170531
  4. HYOSCINE HYDROBROMIDE [Concomitant]
     Active Substance: SCOPOLAMINE
     Dosage: .1667 DOSAGE FORMS DAILY;
     Dates: start: 20170428
  5. LEVETIRACETAM. [Concomitant]
     Active Substance: LEVETIRACETAM
     Dosage: 6 ML DAILY;
     Dates: start: 20170711
  6. MIDAZOLAM [Concomitant]
     Active Substance: MIDAZOLAM HYDROCHLORIDE
     Indication: SEIZURE
     Dates: start: 20170420
  7. CARBAMAZEPINE. [Suspect]
     Active Substance: CARBAMAZEPINE
     Dates: start: 20170420
  8. HYDROCORTISONE. [Concomitant]
     Active Substance: HYDROCORTISONE
     Dosage: POTENCY: MILD. ONCE OR TWICE DAILY.
     Dates: start: 20160929

REACTIONS (2)
  - Rash [Unknown]
  - Skin exfoliation [Recovered/Resolved]

NARRATIVE: CASE EVENT DATE: 20170523
